FAERS Safety Report 15739670 (Version 2)
Quarter: 2019Q1

REPORT INFORMATION
  Report Type: Report from Study
  Country: US (occurrence: US)
  Receive Date: 20181219
  Receipt Date: 20190114
  Transmission Date: 20190417
  Serious: Yes (Hospitalization, Other)
  Sender: FDA-Public Use
  Company Number: US-JNJFOC-20181216453

PATIENT
  Age: 69 Year
  Sex: Female
  Weight: 54.43 kg

DRUGS (1)
  1. IBRUTINIB [Suspect]
     Active Substance: IBRUTINIB
     Indication: CHRONIC LYMPHOCYTIC LEUKAEMIA
     Route: 048
     Dates: start: 20120924, end: 20181204

REACTIONS (2)
  - Left ventricular failure [Unknown]
  - Richter^s syndrome [Unknown]

NARRATIVE: CASE EVENT DATE: 20181205
